FAERS Safety Report 11158854 (Version 1)
Quarter: 2015Q2

REPORT INFORMATION
  Report Type: Report from Study
  Country: JP (occurrence: JP)
  Receive Date: 20150603
  Receipt Date: 20150603
  Transmission Date: 20150821
  Serious: Yes (Other)
  Sender: FDA-Public Use
  Company Number: JP-GUERBET LLC-1039784

PATIENT
  Age: 63 Year
  Sex: Male

DRUGS (3)
  1. EPIRUBICIN HYDROCHLORIDE. [Concomitant]
     Active Substance: EPIRUBICIN HYDROCHLORIDE
     Route: 013
     Dates: start: 20130807, end: 20130807
  2. GELPART [Concomitant]
     Active Substance: GELATIN
     Route: 013
     Dates: start: 20130807, end: 20130807
  3. LIPIODOL [Suspect]
     Active Substance: ETHIODIZED OIL
     Indication: HEPATOCELLULAR CARCINOMA
     Route: 013
     Dates: start: 20130807, end: 20130807

REACTIONS (2)
  - Liver abscess [Recovered/Resolved]
  - Alanine aminotransferase increased [Recovering/Resolving]

NARRATIVE: CASE EVENT DATE: 20131002
